FAERS Safety Report 20883278 (Version 1)
Quarter: 2022Q2

REPORT INFORMATION
  Report Type: Other
  Country: US (occurrence: None)
  Receive Date: 20220527
  Receipt Date: 20220527
  Transmission Date: 20220721
  Serious: Yes (Hospitalization, Other)
  Sender: FDA-Public Use
  Company Number: US-Neopharma Inc-000325

PATIENT
  Age: 23 Month
  Sex: Male

DRUGS (1)
  1. AMOXICILLIN [Suspect]
     Active Substance: AMOXICILLIN
     Indication: Product used for unknown indication
     Dosage: 90 MG/KG/DAY

REACTIONS (8)
  - Crystal nephropathy [Unknown]
  - Hypertension [Recovered/Resolved]
  - Metabolic acidosis [Recovered/Resolved]
  - Pelvi-ureteric obstruction [Recovering/Resolving]
  - Hypervolaemia [Recovered/Resolved]
  - Weight increased [Recovered/Resolved]
  - Acute kidney injury [Unknown]
  - Condition aggravated [Unknown]
